FAERS Safety Report 19427202 (Version 1)
Quarter: 2021Q2

REPORT INFORMATION
  Report Type: Spontaneous
  Country: US (occurrence: US)
  Receive Date: 20210616
  Receipt Date: 20210616
  Transmission Date: 20210717
  Serious: Yes (Hospitalization)
  Sender: FDA-Public Use
  Company Number: None

PATIENT
  Age: 61 Year
  Sex: Female
  Weight: 95 kg

DRUGS (4)
  1. OMEPRAZOLE. [Concomitant]
     Active Substance: OMEPRAZOLE
  2. TIAZAC [Concomitant]
     Active Substance: DILTIAZEM HYDROCHLORIDE
     Dates: start: 20210520
  3. APIXABAN [Suspect]
     Active Substance: APIXABAN
     Indication: ATRIAL FIBRILLATION
     Route: 048
     Dates: start: 20210610, end: 20210616
  4. LEVOTHYROXINE. [Concomitant]
     Active Substance: LEVOTHYROXINE

REACTIONS (14)
  - Asthenia [None]
  - Chest discomfort [None]
  - Diarrhoea [None]
  - Atrial fibrillation [None]
  - Hypersensitivity [None]
  - Nausea [None]
  - Vomiting [None]
  - Peripheral coldness [None]
  - Dyspnoea [None]
  - Fatigue [None]
  - Heart rate increased [None]
  - Feeling abnormal [None]
  - Dizziness [None]
  - Sensation of foreign body [None]

NARRATIVE: CASE EVENT DATE: 20210614
